FAERS Safety Report 6596028-6 (Version None)
Quarter: 2010Q1

REPORT INFORMATION
  Report Type: 
  Country: None (occurrence: None)
  Receive Date: 20100223
  Receipt Date: 20100215
  Transmission Date: 20100710
  Serious: Yes (Hospitalization)
  Sender: FDA-Public Use
  Company Number: PHHO2009JP01906

PATIENT
  Sex: Male
  Weight: 64 kg

DRUGS (13)
  1. MYCOPHENOLATE MOFETIL [Suspect]
     Indication: RENAL TRANSPLANT
     Dosage: 2 G DAILY
     Route: 048
     Dates: start: 20081010, end: 20090203
  2. NEORAL [Suspect]
     Indication: RENAL TRANSPLANT
     Dosage: 250 MG DAILY
     Route: 048
     Dates: start: 20081009
  3. DIOVAN [Suspect]
     Indication: HYPERTENSION
     Dosage: 80 MG DAILY
     Route: 048
     Dates: start: 20081015, end: 20090203
  4. ASPIRIN [Suspect]
  5. MEDROL [Suspect]
     Indication: RENAL TRANSPLANT
     Dosage: 4 MG DAILY
     Route: 048
     Dates: start: 20081009, end: 20090203
  6. LOCHOL [Suspect]
     Indication: HYPERLIPIDAEMIA
     Dosage: 20 MG
     Route: 048
     Dates: start: 20081125, end: 20090201
  7. AZELNIDIPINE [Suspect]
     Indication: HYPERTENSION
     Dosage: 16 MG DAILY
     Route: 048
     Dates: start: 20081017, end: 20090203
  8. SALOBEL [Concomitant]
     Indication: HYPERURICAEMIA
     Dosage: 100 MG DAILY
     Route: 048
     Dates: start: 20081109, end: 20090203
  9. DETANTOL [Concomitant]
     Indication: HYPERTENSION
     Dosage: 3 MG DAILY
     Route: 048
     Dates: start: 20081120, end: 20090203
  10. ZETIA [Concomitant]
     Indication: HYPERLIPIDAEMIA
     Dosage: 10 MG DAILY
     Route: 048
     Dates: start: 20081202, end: 20090203
  11. FERROMIA [Concomitant]
     Indication: IRON DEFICIENCY ANAEMIA
     Dosage: 100 MG DAILY
     Route: 048
     Dates: start: 20080113, end: 20090203
  12. CALBLOCK [Concomitant]
  13. SOL-MELCORT [Concomitant]

REACTIONS (10)
  - ABDOMINAL PAIN UPPER [None]
  - BLOOD CREATININE INCREASED [None]
  - BLOOD PRESSURE DECREASED [None]
  - DIZZINESS [None]
  - DRUG INEFFECTIVE [None]
  - GASTRIC ULCER HAEMORRHAGE [None]
  - HAEMOGLOBIN DECREASED [None]
  - KIDNEY TRANSPLANT REJECTION [None]
  - NAUSEA [None]
  - VOMITING [None]
